FAERS Safety Report 7536677-1 (Version None)
Quarter: 2011Q2

REPORT INFORMATION
  Report Type: 
  Country: None (occurrence: None)
  Receive Date: 20110609
  Receipt Date: 20110603
  Transmission Date: 20111010
  Serious: Yes (Death)
  Sender: FDA-Public Use
  Company Number: A0926302A

PATIENT
  Age: 57 Year
  Sex: Female

DRUGS (1)
  1. PROMACTA [Suspect]
     Indication: THROMBOCYTOPENIA
     Dosage: 50MG THREE TIMES PER WEEK
     Dates: start: 20090602

REACTIONS (2)
  - DRUG INEFFECTIVE [None]
  - DEATH [None]
